FAERS Safety Report 20223813 (Version 1)
Quarter: 2021Q4

REPORT INFORMATION
  Report Type: Spontaneous
  Country: US (occurrence: US)
  Receive Date: 20211223
  Receipt Date: 20211223
  Transmission Date: 20220303
  Serious: Yes (Other)
  Sender: FDA-Public Use
  Company Number: US-BAYER-2021A270178

PATIENT
  Age: 75 Year
  Sex: Female

DRUGS (2)
  1. BAYER LOW DOSE [Suspect]
     Active Substance: ASPIRIN
  2. EUCRISA [Suspect]
     Active Substance: CRISABOROLE
     Indication: Pain in extremity
     Dosage: UNK

REACTIONS (5)
  - Rash [Unknown]
  - Pain in extremity [Unknown]
  - Pruritus [Unknown]
  - Haemorrhage [Unknown]
  - Intestinal haemorrhage [Unknown]
